FAERS Safety Report 8551712-X (Version None)
Quarter: 2012Q3

REPORT INFORMATION
  Report Type: 
  Country: None (occurrence: None)
  Receive Date: 20120730
  Receipt Date: 20120720
  Transmission Date: 20120928
  Serious: Yes (Hospitalization)
  Sender: FDA-Public Use
  Company Number: US-ASTRAZENECA-2012SE44544

PATIENT
  Age: 64 Year
  Sex: Male

DRUGS (2)
  1. NEXIUM [Suspect]
     Route: 048
  2. PREVACID [Concomitant]

REACTIONS (7)
  - DISCOMFORT [None]
  - PAIN [None]
  - NAUSEA [None]
  - DRUG DOSE OMISSION [None]
  - REFLUX LARYNGITIS [None]
  - ADVERSE EVENT [None]
  - CHOKING [None]
